FAERS Safety Report 6266762-6 (Version None)
Quarter: 2009Q3

REPORT INFORMATION
  Report Type: 
  Country: None (occurrence: None)
  Receive Date: 20090710
  Receipt Date: 20090710
  Transmission Date: 20100115
  Serious: Yes (Death, Hospitalization)
  Sender: FDA-Public Use
  Company Number: None

PATIENT
  Sex: Male
  Weight: 71.2 kg

DRUGS (11)
  1. ERLOTINIB [Suspect]
     Indication: NON-SMALL CELL LUNG CANCER
     Dosage: 100MG, PO, QDAY
     Route: 048
     Dates: start: 20090420, end: 20090531
  2. LBH 589B [Suspect]
     Indication: NON-SMALL CELL LUNG CANCER
     Dosage: 30MG, PO, 4 DOSES
     Route: 048
     Dates: start: 20090428, end: 20090528
  3. METHACIN [Concomitant]
  4. GABAPENTIN [Concomitant]
  5. OXYCODONE [Concomitant]
  6. PREVACID [Concomitant]
  7. CLINDAYCIN [Concomitant]
  8. FLUTICASONE [Concomitant]
  9. LACTULOSE [Concomitant]
  10. COLACE [Concomitant]
  11. BISOPROLOL FUMARATE [Concomitant]

REACTIONS (4)
  - DISEASE PROGRESSION [None]
  - NON-SMALL CELL LUNG CANCER [None]
  - PULMONARY EMBOLISM [None]
  - RECTAL HAEMORRHAGE [None]
